FAERS Safety Report 7530921-2 (Version None)
Quarter: 2011Q2

REPORT INFORMATION
  Report Type: 
  Country: None (occurrence: None)
  Receive Date: 20110608
  Receipt Date: 20110414
  Transmission Date: 20111010
  Serious: Yes (Hospitalization)
  Sender: FDA-Public Use
  Company Number: US-CELGENEUS-087-21660-11042249

PATIENT
  Sex: Female
  Weight: 57 kg

DRUGS (5)
  1. ARIMIDEX [Concomitant]
     Route: 065
     Dates: start: 20080125, end: 20101115
  2. ABRAXANE [Suspect]
     Dosage: 400 MILLIGRAM
     Route: 051
     Dates: start: 20101115, end: 20101115
  3. HUMALOG [Concomitant]
     Indication: DIABETES MELLITUS
     Route: 058
     Dates: end: 20110104
  4. LANTUS [Concomitant]
     Indication: DIABETES MELLITUS
     Route: 058
     Dates: end: 20110104
  5. OXYCONTIN [Concomitant]
     Route: 065
     Dates: start: 20101009, end: 20110104

REACTIONS (4)
  - DECREASED APPETITE [None]
  - HYPERGLYCAEMIA [None]
  - WHITE BLOOD CELL COUNT DECREASED [None]
  - NEUTROPHIL COUNT DECREASED [None]
